FAERS Safety Report 5358142-2 (Version None)
Quarter: 2007Q2

REPORT INFORMATION
  Report Type: 
  Country: None (occurrence: None)
  Receive Date: 20070530
  Receipt Date: 20061027
  Transmission Date: 20071010
  Serious: Yes (Other)
  Sender: FDA-Public Use
  Company Number: US200605006548

PATIENT
  Age: 35 Year
  Sex: Female
  Weight: 89.3 kg

DRUGS (6)
  1. ZYPREXA [Suspect]
     Dosage: 5 MG
     Dates: start: 19970601
  2. QUETIAPINE FUMARATE [Concomitant]
  3. CHLORPROMAZINE [Concomitant]
  4. BUPROPION HCL [Concomitant]
  5. DOXEPIN HCL [Concomitant]
  6. PREDNISOLONE [Concomitant]

REACTIONS (5)
  - BILIARY TRACT DISORDER [None]
  - LACTIC ACIDOSIS [None]
  - PANCREATITIS [None]
  - VISION BLURRED [None]
  - WEIGHT DECREASED [None]
